FAERS Safety Report 10680748 (Version 3)
Quarter: 2015Q4

REPORT INFORMATION
  Report Type: Spontaneous
  Country: US (occurrence: US)
  Receive Date: 20141229
  Receipt Date: 20151228
  Transmission Date: 20160304
  Serious: Yes (Hospitalization)
  Sender: FDA-Public Use
  Company Number: US-SANOFI-AVENTIS-2012SA028547

PATIENT
  Age: 87 Year
  Sex: Female

DRUGS (40)
  1. ASPIRIN. [Concomitant]
     Active Substance: ASPIRIN
  2. NORVASC [Concomitant]
     Active Substance: AMLODIPINE BESYLATE
  3. CALCIUM [Concomitant]
     Active Substance: CALCIUM
     Dosage: STRENGTH: 500 MG
     Route: 048
  4. ATACAND [Concomitant]
     Active Substance: CANDESARTAN CILEXETIL
     Route: 048
  5. DIAZOXIDE [Concomitant]
     Active Substance: DIAZOXIDE
  6. HYDROCHLOROTHIAZIDE/TRIAMTERENE [Concomitant]
     Route: 048
  7. DICLOFENAC [Concomitant]
     Active Substance: DICLOFENAC
  8. SIMVASTATIN. [Concomitant]
     Active Substance: SIMVASTATIN
     Route: 048
  9. CORGARD [Concomitant]
     Active Substance: NADOLOL
     Route: 048
  10. FISH OIL [Concomitant]
     Active Substance: FISH OIL
     Route: 048
  11. VITAMIN E [Concomitant]
     Active Substance: .ALPHA.-TOCOPHEROL
     Route: 048
  12. METFORMIN [Concomitant]
     Active Substance: METFORMIN HYDROCHLORIDE
     Indication: DIABETES MELLITUS
  13. HYDROCHLOROTHIAZIDE. [Concomitant]
     Active Substance: HYDROCHLOROTHIAZIDE
  14. SIMVASTATIN. [Concomitant]
     Active Substance: SIMVASTATIN
     Route: 048
  15. VITAMIN C [Concomitant]
     Active Substance: ASCORBIC ACID
     Dosage: STRENGTH: 1000 MG
     Route: 048
  16. VITAMIN B12 [Concomitant]
     Active Substance: CYANOCOBALAMIN
     Dosage: STRENGTH: 1500 MCG
     Route: 048
  17. LIDOCAINE. [Concomitant]
     Active Substance: LIDOCAINE
     Route: 061
  18. EXCEDRIN [Concomitant]
     Active Substance: ACETAMINOPHEN\ASPIRIN\CAFFEINE
  19. BENAZEPRIL HYDROCHLORIDE. [Concomitant]
     Active Substance: BENAZEPRIL HYDROCHLORIDE
  20. ZOCOR [Concomitant]
     Active Substance: SIMVASTATIN
     Indication: HYPERLIPIDAEMIA
  21. ARTHROTEC [Concomitant]
     Active Substance: DICLOFENAC SODIUM\MISOPROSTOL
     Route: 048
  22. PENICILLIN [Concomitant]
     Active Substance: PENICILLIN
  23. CAPTOPRIL. [Concomitant]
     Active Substance: CAPTOPRIL
     Route: 048
  24. ST. JOHN^S WORT [Concomitant]
     Active Substance: ST. JOHN^S WORT
     Route: 048
  25. PLAVIX [Suspect]
     Active Substance: CLOPIDOGREL BISULFATE
     Indication: ARTERIAL OCCLUSIVE DISEASE
     Route: 048
     Dates: start: 20060116, end: 20111117
  26. KETOPROFEN. [Concomitant]
     Active Substance: KETOPROFEN
     Dosage: STRENGTH: 10 %
     Route: 061
  27. ZYVOX [Concomitant]
     Active Substance: LINEZOLID
  28. VYTORIN [Concomitant]
     Active Substance: EZETIMIBE\SIMVASTATIN
  29. METHOTREXATE [Concomitant]
     Active Substance: METHOTREXATE
     Indication: RHEUMATOID ARTHRITIS
     Dosage: 0.5CC ONCE WEEKLY ?FORM: SOLUTION DOSE:25 MILLIGRAM(S)/MILLILITRE
  30. LIPITOR [Concomitant]
     Active Substance: ATORVASTATIN CALCIUM
  31. CIPROFLOXACIN. [Concomitant]
     Active Substance: CIPROFLOXACIN
  32. DOXEPIN [Concomitant]
     Active Substance: DOXEPIN
  33. GINKGO BILOBA [Concomitant]
     Active Substance: GINKGO
     Route: 048
  34. AMLODIPINE [Concomitant]
     Active Substance: AMLODIPINE BESYLATE
  35. CLINDAMYCIN [Concomitant]
     Active Substance: CLINDAMYCIN\CLINDAMYCIN PHOSPHATE
  36. HYDROCODONE [Concomitant]
     Active Substance: HYDROCODONE
     Dosage: Q6H PRN
  37. BUPROPION HYDROCHLORIDE. [Concomitant]
     Active Substance: BUPROPION HYDROCHLORIDE
  38. VICODIN [Concomitant]
     Active Substance: ACETAMINOPHEN\HYDROCODONE BITARTRATE
     Indication: PAIN
     Dosage: 1-2 TAB PO Q4H PRN PAIN BUT NOT MORE THEN 8 PER DAY
     Route: 048
  39. WELLBUTRIN [Concomitant]
     Active Substance: BUPROPION HYDROCHLORIDE
     Route: 048
  40. DHEA [Concomitant]
     Active Substance: PRASTERONE
     Route: 048

REACTIONS (3)
  - Peptic ulcer [Unknown]
  - Gastrointestinal haemorrhage [Unknown]
  - Ill-defined disorder [Unknown]
